FAERS Safety Report 13284807 (Version 2)
Quarter: 2017Q2

REPORT INFORMATION
  Report Type: Report from Study
  Country: JP (occurrence: JP)
  Receive Date: 20170301
  Receipt Date: 20170404
  Transmission Date: 20170830
  Serious: Yes (Hospitalization)
  Sender: FDA-Public Use
  Company Number: JP-UCBSA-2016022811

PATIENT
  Age: 69 Year
  Sex: Male
  Weight: 46 kg

DRUGS (6)
  1. CERTOLIZUMAB PEGOL RA [Suspect]
     Active Substance: CERTOLIZUMAB PEGOL
     Dosage: 200 MG, EV 2 WEEKS(QOW)
     Route: 058
     Dates: start: 20150324, end: 20161221
  2. METOLATE [Concomitant]
     Active Substance: METHOTREXATE
     Dosage: 8 MG, UNK
     Route: 048
     Dates: start: 20150428
  3. PREDNISOLONE. [Concomitant]
     Active Substance: PREDNISOLONE
     Indication: RHEUMATOID ARTHRITIS
     Dosage: 5 MG, UNK
     Route: 048
  4. CERTOLIZUMAB PEGOL RA [Suspect]
     Active Substance: CERTOLIZUMAB PEGOL
     Indication: RHEUMATOID ARTHRITIS
     Dosage: 400 MG, EV 2 WEEKS(QOW)
     Route: 058
     Dates: start: 20150127, end: 20150224
  5. LOXONIN [Suspect]
     Active Substance: LOXOPROFEN SODIUM
     Indication: RHEUMATOID ARTHRITIS
     Dosage: 180 MG, ONCE DAILY (QD)
     Route: 048
     Dates: start: 20150127
  6. METOLATE [Concomitant]
     Active Substance: METHOTREXATE
     Indication: RHEUMATOID ARTHRITIS
     Dosage: 8 MG, UNK
     Route: 048
     Dates: end: 20150420

REACTIONS (6)
  - Gastritis [Recovering/Resolving]
  - Anaemia [Recovering/Resolving]
  - Knee arthroplasty [Recovering/Resolving]
  - Faeces soft [Recovered/Resolved]
  - Helicobacter test positive [Not Recovered/Not Resolved]
  - Viral upper respiratory tract infection [Recovered/Resolved]

NARRATIVE: CASE EVENT DATE: 20150610
